FAERS Safety Report 13220860 (Version 1)
Quarter: 2017Q1

REPORT INFORMATION
  Report Type: Spontaneous
  Country: US (occurrence: US)
  Receive Date: 20170211
  Receipt Date: 20170211
  Transmission Date: 20170428
  Serious: No
  Sender: FDA-Public Use
  Company Number: US-ACORDA-ACO_129604_2016

PATIENT
  Age: 33 Year
  Sex: Female
  Weight: 68.27 kg

DRUGS (1)
  1. AMPYRA [Suspect]
     Active Substance: DALFAMPRIDINE
     Indication: GAIT DISTURBANCE
     Dosage: 10 MG, BID
     Route: 048
     Dates: start: 20161010, end: 20161018

REACTIONS (4)
  - Diplopia [Recovered/Resolved]
  - Hypermetropia [Recovered/Resolved]
  - Urinary retention [Recovered/Resolved]
  - Urinary tract infection [Unknown]

NARRATIVE: CASE EVENT DATE: 20161018
